FAERS Safety Report 8781790 (Version 2)
Quarter: 2013Q4

REPORT INFORMATION
  Report Type: Spontaneous
  Country: US (occurrence: US)
  Receive Date: 20120913
  Receipt Date: 20131030
  Transmission Date: 20140711
  Serious: No
  Sender: FDA-Public Use
  Company Number: US-009507513-0908USA04852

PATIENT
  Age: 32 Year
  Sex: Female

DRUGS (5)
  1. SUSTIVA [Suspect]
     Indication: PATHOGEN RESISTANCE
     Dosage: UNK
     Route: 048
     Dates: start: 199909
  2. ISENTRESS [Suspect]
     Indication: PATHOGEN RESISTANCE
     Dosage: 1 DF, BID
     Route: 048
     Dates: start: 200809
  3. ATRIPLA [Suspect]
     Indication: PATHOGEN RESISTANCE
     Route: 048
     Dates: start: 200805
  4. COMBIVIR [Suspect]
     Indication: PATHOGEN RESISTANCE
     Route: 048
     Dates: start: 200909
  5. VIRACEPT [Suspect]
     Indication: PATHOGEN RESISTANCE
     Dosage: 1 DF, TID
     Route: 048
     Dates: start: 199909

REACTIONS (1)
  - Neutropenia [Unknown]
